FAERS Safety Report 9517818 (Version 2)
Quarter: 2016Q1

REPORT INFORMATION
  Report Type: Report from Study
  Country: US (occurrence: US)
  Receive Date: 20130912
  Receipt Date: 20160301
  Transmission Date: 20160526
  Serious: Yes (Death)
  Sender: FDA-Public Use
  Company Number: US-ROCHE-1274479

PATIENT
  Age: 43 Year
  Sex: Female

DRUGS (9)
  1. ACETYLCYSTEINE. [Concomitant]
     Active Substance: ACETYLCYSTEINE
     Route: 042
     Dates: start: 20130902, end: 20130903
  2. CASPOFUNGIN [Concomitant]
     Active Substance: CASPOFUNGIN
     Route: 042
     Dates: start: 20130902, end: 20130902
  3. ACTIVASE [Suspect]
     Active Substance: ALTEPLASE
     Indication: PULMONARY EMBOLISM
  4. DEXAMETHASONE SODIUM PHOSPHATE. [Concomitant]
     Active Substance: DEXAMETHASONE SODIUM PHOSPHATE
     Route: 042
     Dates: start: 20130902, end: 20130904
  5. VANCOMYCIN [Concomitant]
     Active Substance: VANCOMYCIN
  6. VASOPRESSIN. [Concomitant]
     Active Substance: VASOPRESSIN
     Dosage: 0.04 UNITS
     Route: 065
  7. ACTIVASE [Suspect]
     Active Substance: ALTEPLASE
     Indication: SEPSIS
     Route: 042
     Dates: start: 20130902, end: 20130902
  8. LEVOPHED [Concomitant]
     Active Substance: NOREPINEPHRINE BITARTRATE
  9. CASPOFUNGIN [Concomitant]
     Active Substance: CASPOFUNGIN
     Route: 042
     Dates: start: 20130903, end: 20130906

REACTIONS (1)
  - Death [Fatal]

NARRATIVE: CASE EVENT DATE: 20130906
